FAERS Safety Report 5245879-9 (Version None)
Quarter: 2007Q1

REPORT INFORMATION
  Report Type: 
  Country: None (occurrence: None)
  Receive Date: 20070216
  Receipt Date: 20070205
  Transmission Date: 20070707
  Serious: Yes (Other)
  Sender: FDA-Public Use
  Company Number: 2007306509

PATIENT
  Age: 81 Year
  Sex: Female
  Weight: 48.1 kg

DRUGS (2)
  1. ROGAINE [Suspect]
     Indication: ALOPECIA
     Dosage: 1 ML TWICE DAILY (1 ML, 2 IN 1 D), TOPICAL
     Route: 061
     Dates: start: 19920101
  2. QVAR (BECLOMETASONE DIPROPIONATE) [Concomitant]

REACTIONS (1)
  - NON-HODGKIN'S LYMPHOMA [None]
